FAERS Safety Report 14401782 (Version 1)
Quarter: 2018Q1

REPORT INFORMATION
  Report Type: Spontaneous
  Country: US (occurrence: US)
  Receive Date: 20180117
  Receipt Date: 20180117
  Transmission Date: 20180509
  Serious: Yes (Death)
  Sender: FDA-Public Use
  Company Number: US-PFIZER INC-2018013862

PATIENT
  Sex: Female

DRUGS (3)
  1. NITRIC OXIDE. [Suspect]
     Active Substance: NITRIC OXIDE
     Indication: CYANOSIS NEONATAL
     Dosage: UNK
     Route: 055
  2. SILDENAFIL CITRATE. [Suspect]
     Active Substance: SILDENAFIL CITRATE
     Indication: CYANOSIS NEONATAL
     Dosage: UNK
  3. PROSTACYCLIN [Suspect]
     Active Substance: EPOPROSTENOL
     Indication: CYANOSIS NEONATAL
     Dosage: UNK

REACTIONS (1)
  - Drug ineffective [Fatal]
